FAERS Safety Report 25415918 (Version 2)
Quarter: 2025Q3

REPORT INFORMATION
  Report Type: Spontaneous
  Country: US (occurrence: US)
  Receive Date: 20250610
  Receipt Date: 20250701
  Transmission Date: 20251020
  Serious: Yes (Life-Threatening, Hospitalization, Other)
  Sender: MARKSANS PHARMA LIMITED
  Company Number: US-MARKSANS PHARMA LIMITED-MPL202500059

PATIENT

DRUGS (1)
  1. METFORMIN HYDROCHLORIDE [Suspect]
     Active Substance: METFORMIN HYDROCHLORIDE
     Indication: Product used for unknown indication
     Route: 065

REACTIONS (12)
  - Acute myocardial infarction [Recovered/Resolved]
  - Hyperkalaemia [Unknown]
  - Multiple organ dysfunction syndrome [Unknown]
  - Blindness transient [Recovered/Resolved]
  - Acute kidney injury [Recovered/Resolved]
  - Myocardial ischaemia [Unknown]
  - Bradycardia [Unknown]
  - Metabolic acidosis [Unknown]
  - Cerebral disorder [Recovered/Resolved]
  - Lactic acidosis [Recovered/Resolved]
  - Hypotension [Unknown]
  - Hypothermia [Recovered/Resolved]
